FAERS Safety Report 8911652 (Version 2)
Quarter: 2012Q4

REPORT INFORMATION
  Report Type: 
  Country: US (occurrence: US)
  Receive Date: 20121115
  Receipt Date: 20121204
  Transmission Date: 20130627
  Serious: No
  Sender: FDA-Public Use
  Company Number: US-COVIDIEN/TYCO HEALTHCARE/MALLINCKRODT-T201203933

PATIENT
  Age: 56 Year
  Sex: Female
  Weight: 97.05 kg

DRUGS (17)
  1. HYDROCODONE/ACETAMINOPHEN [Suspect]
     Indication: BACK PAIN
     Dosage: 7.5/500 mg, 1.5 tab, tid
     Route: 048
     Dates: start: 20121024, end: 20121108
  2. HYDROCODONE/ACETAMINOPHEN [Suspect]
     Indication: ARTHRALGIA
  3. ATENOLOL [Concomitant]
     Indication: HEART RATE INCREASED
     Dosage: 25 mg once a day
     Dates: start: 201210, end: 20121107
  4. HYDROCODONE BITARTRATE AND ACETAMINOPHEN [Concomitant]
     Dosage: UNK
  5. VALIUM                             /00017001/ [Concomitant]
     Indication: INSOMNIA
     Dosage: 5 mg tablet bid prn
  6. VALIUM                             /00017001/ [Concomitant]
     Indication: STRESS
  7. GLYBURIDE [Concomitant]
     Indication: DIABETES MELLITUS
     Dosage: 5 mg tab, 2 tabs bid
  8. LISINOPRIL [Concomitant]
     Indication: HYPERTENSION
     Dosage: 20 mg tablet, 2 tabs once a day
     Route: 048
  9. ASPIRIN [Concomitant]
     Dosage: 81 mg once a day
  10. OMEPRAZOLE [Concomitant]
     Dosage: 20 mg once a day
  11. MIRALAX                            /00754501/ [Concomitant]
     Dosage: 17 g once a day
  12. PLAVIX [Concomitant]
     Dosage: 75 mg tablet once a day
  13. PERCOCET                           /00446701/ [Concomitant]
     Dosage: 10/325 mg every 6 hours
  14. ALBUTEROL                          /00139501/ [Concomitant]
     Dosage: 90 mcg/inh 2 puffs 4 times a day
  15. ALBUTEROL                          /00139501/ [Concomitant]
     Dosage: 0.083% solution 3 ml every 6 hours
  16. NITROGLYCERIN [Concomitant]
     Dosage: 0.4 mg tablet
  17. FORADIL [Concomitant]
     Dosage: 12 mcg q12h

REACTIONS (4)
  - Blood pressure increased [Recovered/Resolved]
  - Blood glucose increased [Recovering/Resolving]
  - Heart rate increased [Recovered/Resolved]
  - Paraesthesia [Unknown]
